FAERS Safety Report 8099960-X (Version None)
Quarter: 2012Q1

REPORT INFORMATION
  Report Type: 
  Country: None (occurrence: None)
  Receive Date: 20120129
  Receipt Date: 20111122
  Transmission Date: 20120608
  Serious: No
  Sender: FDA-Public Use
  Company Number: US-ABBOTT-11P-163-0878691-00

PATIENT
  Age: 26 Year
  Sex: Female

DRUGS (3)
  1. HUMIRA [Suspect]
     Indication: PSORIASIS
     Dates: start: 20110901
  2. ORAL CONTRACEPTIVE [Concomitant]
     Indication: PRODUCT USED FOR UNKNOWN INDICATION
  3. ANIPRYL [Concomitant]
     Indication: DYSPEPSIA
     Dosage: AS NEEDED: HAS NOT TAKEN IN QUITE AWHILE

REACTIONS (1)
  - ARTHRALGIA [None]
